FAERS Safety Report 19407623 (Version 1)
Quarter: 2021Q2

REPORT INFORMATION
  Report Type: Report from Study
  Country: None (occurrence: BR)
  Receive Date: 20210612
  Receipt Date: 20210612
  Transmission Date: 20210717
  Serious: Yes (Hospitalization, Other)
  Sender: FDA-Public Use
  Company Number: BR-ABBVIE-21K-020-3941436-00

PATIENT
  Age: 43 Year
  Sex: Female

DRUGS (6)
  1. UPADACITINIB [Suspect]
     Active Substance: UPADACITINIB
     Dosage: UNSPECIFIED DOSE
     Route: 048
     Dates: start: 2021
  2. SERTRALINE [Concomitant]
     Active Substance: SERTRALINE HYDROCHLORIDE
     Indication: PRODUCT USED FOR UNKNOWN INDICATION
  3. NORTRIPTYLINE HYDROCHLORIDE. [Concomitant]
     Active Substance: NORTRIPTYLINE HYDROCHLORIDE
     Indication: PRODUCT USED FOR UNKNOWN INDICATION
  4. METHOTREXATE. [Concomitant]
     Active Substance: METHOTREXATE
     Indication: PRODUCT USED FOR UNKNOWN INDICATION
  5. VITAMIN D [Concomitant]
     Active Substance: VITAMIN D NOS
     Indication: PRODUCT USED FOR UNKNOWN INDICATION
  6. UPADACITINIB [Suspect]
     Active Substance: UPADACITINIB
     Indication: RHEUMATOID ARTHRITIS
     Dosage: UNSPECIFIED DOSE
     Route: 048
     Dates: start: 20210208, end: 2021

REACTIONS (11)
  - Bladder discomfort [Unknown]
  - Pain [Unknown]
  - Urinary tract infection [Unknown]
  - Stereotypy [Unknown]
  - Discomfort [Unknown]
  - Hypophagia [Unknown]
  - Bladder pain [Recovering/Resolving]
  - Blood cholesterol increased [Not Recovered/Not Resolved]
  - Intentional product misuse [Unknown]
  - Nephrolithiasis [Unknown]
  - Hyperaesthesia [Unknown]

NARRATIVE: CASE EVENT DATE: 2021
